FAERS Safety Report 7850930-3 (Version None)
Quarter: 2011Q4

REPORT INFORMATION
  Report Type: 
  Country: None (occurrence: None)
  Receive Date: 20111026
  Receipt Date: 20111021
  Transmission Date: 20120403
  Serious: Yes (Other)
  Sender: FDA-Public Use
  Company Number: US-SANOFI-AVENTIS-2011SA070021

PATIENT
  Age: 76 Year
  Sex: Male

DRUGS (5)
  1. ALISKIREN [Concomitant]
  2. MICARDIS [Concomitant]
  3. HERBAL PREPARATION [Concomitant]
  4. AMLODIPINE BESYLATE [Concomitant]
  5. MULTAQ [Suspect]
     Indication: ATRIAL FIBRILLATION
     Route: 048
     Dates: start: 20111001

REACTIONS (1)
  - THROMBOCYTOPENIA [None]
